FAERS Safety Report 12897182 (Version 2)
Quarter: 2017Q1

REPORT INFORMATION
  Report Type: Spontaneous
  Country: JP (occurrence: JP)
  Receive Date: 20161031
  Receipt Date: 20170213
  Transmission Date: 20170428
  Serious: Yes (Other)
  Sender: FDA-Public Use
  Company Number: JP-SA-2016SA197883

PATIENT
  Age: 70 Year
  Sex: Male

DRUGS (4)
  1. FRANDOL TAPE [Suspect]
     Active Substance: ISOSORBIDE DINITRATE
     Route: 065
  2. SOLOSTAR [Concomitant]
     Active Substance: DEVICE
     Indication: TYPE 2 DIABETES MELLITUS
     Route: 058
  3. BENIDIPINE [Suspect]
     Active Substance: BENIDIPINE
     Route: 065
     Dates: start: 20140501
  4. LANTUS SOLOSTAR [Suspect]
     Active Substance: INSULIN GLARGINE
     Indication: TYPE 2 DIABETES MELLITUS
     Dosage: BEDTIME
     Route: 058

REACTIONS (1)
  - Angina pectoris [Unknown]
